FAERS Safety Report 4727749-5 (Version None)
Quarter: 2005Q3

REPORT INFORMATION
  Report Type: 
  Country: None (occurrence: None)
  Receive Date: 20050727
  Receipt Date: 20050718
  Transmission Date: 20060218
  Serious: Yes (Death, Hospitalization)
  Sender: FDA-Public Use
  Company Number: 2005-06-2276

PATIENT
  Age: 74 Year
  Sex: Male
  Weight: 82 kg

DRUGS (13)
  1. PEG-INTRON [Suspect]
     Indication: HEPATITIS C
     Dosage: 80 MCG QWK SUBCUTANEOUS
     Route: 058
     Dates: start: 20040301
  2. REBETOL [Suspect]
     Indication: HEPATITIS C
     Dosage: SEE IMAGE
     Route: 048
     Dates: start: 20040901, end: 20050419
  3. REBETOL [Suspect]
     Indication: HEPATITIS C
     Dosage: SEE IMAGE
     Route: 048
     Dates: start: 20040901
  4. REBETOL [Suspect]
     Indication: HEPATITIS C
     Dosage: SEE IMAGE
     Route: 048
     Dates: start: 20050420
  5. MARCUMAR [Concomitant]
  6. ARRHYTHMIA [Concomitant]
  7. NEBIVOLOL [Concomitant]
  8. XIPAMIDE [Concomitant]
  9. RAMIPRIL [Concomitant]
  10. SIMVASTATIN [Concomitant]
  11. FLUTICASONE PROPIONATE [Concomitant]
  12. SALMETEROL [Concomitant]
  13. TIOTROPIUM BROMIDE [Concomitant]

REACTIONS (9)
  - ANOREXIA [None]
  - FATIGUE [None]
  - HAEMOLYSIS [None]
  - INSOMNIA [None]
  - LEUKOPENIA [None]
  - OEDEMA [None]
  - PULMONARY FUNCTION TEST DECREASED [None]
  - PYREXIA [None]
  - WEIGHT DECREASED [None]
